FAERS Safety Report 8965960 (Version 1)
Quarter: 2012Q4

REPORT INFORMATION
  Report Type: Spontaneous
  Country: DK (occurrence: None)
  Receive Date: 20121204
  Receipt Date: 20121204
  Transmission Date: 20130627
  Serious: Yes (Hospitalization)
  Sender: FDA-Public Use
  Company Number: 2012MA013695

PATIENT
  Age: 29 Year
  Sex: Male

DRUGS (2)
  1. ISOSORBIDE MONONITRATE [Suspect]
     Route: 048
     Dates: start: 20120908, end: 20120908
  2. ERYTHROMYCIN [Suspect]
     Route: 048
     Dates: start: 20120419

REACTIONS (8)
  - Dizziness [None]
  - Headache [None]
  - Nausea [None]
  - Vomiting [None]
  - Medication error [None]
  - Product packaging issue [None]
  - Wrong drug administered [None]
  - Drug dispensing error [None]
